FAERS Safety Report 8443959-8 (Version None)
Quarter: 2012Q2

REPORT INFORMATION
  Report Type: 
  Country: None (occurrence: None)
  Receive Date: 20120618
  Receipt Date: 20120605
  Transmission Date: 20120825
  Serious: Yes (Other)
  Sender: FDA-Public Use
  Company Number: US-BAYER-2012-055538

PATIENT
  Age: 46 Year
  Sex: Female
  Weight: 72.562 kg

DRUGS (3)
  1. DROSPIRENONE AND ETHINYL ESTRADIOL [Suspect]
     Indication: MENORRHAGIA
  2. KEFLEX [Concomitant]
     Indication: WOUND INFECTION
  3. DROSPIRENONE AND ETHINYL ESTRADIOL [Suspect]
     Indication: CONTRACEPTION
     Dosage: UNK
     Dates: start: 20090518, end: 20090909

REACTIONS (6)
  - DEEP VEIN THROMBOSIS [None]
  - INJURY [None]
  - OEDEMA PERIPHERAL [None]
  - PAIN [None]
  - LOWER EXTREMITY MASS [None]
  - PAIN IN EXTREMITY [None]
